FAERS Safety Report 5962605-6 (Version None)
Quarter: 2008Q4

REPORT INFORMATION
  Report Type: 
  Country: None (occurrence: None)
  Receive Date: 20081121
  Receipt Date: 20081113
  Transmission Date: 20090506
  Serious: Yes (Other)
  Sender: FDA-Public Use
  Company Number: JP-PFIZER INC-2008096868

PATIENT

DRUGS (1)
  1. HALCION [Suspect]

REACTIONS (3)
  - ACCIDENTAL EXPOSURE [None]
  - COMA [None]
  - VICTIM OF CRIME [None]
